FAERS Safety Report 14838742 (Version 1)
Quarter: 2018Q2

REPORT INFORMATION
  Report Type: Spontaneous
  Country: BR (occurrence: BR)
  Receive Date: 20180502
  Receipt Date: 20180502
  Transmission Date: 20180711
  Serious: Yes (Hospitalization, Other)
  Sender: FDA-Public Use
  Company Number: BR-JNJFOC-20180435956

PATIENT
  Age: 77 Year
  Sex: Female

DRUGS (4)
  1. LEVOTIROXINA [Concomitant]
     Route: 065
  2. RENITEC [Concomitant]
     Active Substance: ENALAPRIL MALEATE
     Route: 065
  3. XARELTO [Suspect]
     Active Substance: RIVAROXABAN
     Indication: PULMONARY EMBOLISM
     Route: 048
  4. MODURETIC 5-50 [Concomitant]
     Active Substance: AMILORIDE HYDROCHLORIDE\HYDROCHLOROTHIAZIDE
     Route: 065

REACTIONS (4)
  - Haemorrhagic cerebral infarction [Unknown]
  - Depressed level of consciousness [Unknown]
  - Intraventricular haemorrhage [Unknown]
  - Motor dysfunction [Unknown]

NARRATIVE: CASE EVENT DATE: 20180411
